FAERS Safety Report 18500605 (Version 1)
Quarter: 2020Q4

REPORT INFORMATION
  Report Type: Other
  Country: CN (occurrence: CN)
  Receive Date: 20201113
  Receipt Date: 20201113
  Transmission Date: 20210114
  Serious: Yes (Hospitalization, Other)
  Sender: FDA-Public Use
  Company Number: CN-ASTELLAS-2020US039897

PATIENT
  Age: 63 Year
  Sex: Male

DRUGS (2)
  1. PROGRAF [Suspect]
     Active Substance: TACROLIMUS
     Indication: PROPHYLAXIS AGAINST TRANSPLANT REJECTION
     Dosage: 0.5 MG, TWICE DAILY
     Route: 048
     Dates: start: 20200801, end: 20201105
  2. CELLCEPT [Suspect]
     Active Substance: MYCOPHENOLATE MOFETIL\MYCOPHENOLATE MOFETIL HYDROCHLORIDE
     Indication: PROPHYLAXIS AGAINST TRANSPLANT REJECTION
     Dosage: 0.5 G, TWICE DAILY
     Route: 048
     Dates: start: 20200801, end: 20201105

REACTIONS (4)
  - Pericardial effusion [Unknown]
  - Infection [Recovering/Resolving]
  - Pulmonary mass [Unknown]
  - Pleural thickening [Unknown]

NARRATIVE: CASE EVENT DATE: 20201015
